FAERS Safety Report 7447751-2 (Version None)
Quarter: 2011Q2

REPORT INFORMATION
  Report Type: 
  Country: None (occurrence: None)
  Receive Date: 20110429
  Receipt Date: 20100805
  Transmission Date: 20111010
  Serious: No
  Sender: FDA-Public Use
  Company Number: US-ASTRAZENECA-2010SE36921

PATIENT
  Age: 76 Year
  Sex: Female

DRUGS (9)
  1. PROPRANOLOL [Concomitant]
  2. LISINOPRIL AND HYDROCHLOROTHIAZIDE [Concomitant]
  3. NEXIUM [Suspect]
     Indication: GASTROOESOPHAGEAL REFLUX DISEASE
     Route: 048
     Dates: start: 20060101, end: 20100301
  4. GENERIC NASONEX [Concomitant]
  5. CADUET [Concomitant]
  6. OMEPRAZOLE [Suspect]
     Route: 048
  7. TRAMADOL HCL [Concomitant]
  8. ADVAIR DISKUS 100/50 [Concomitant]
     Indication: ASTHMA
  9. NEXIUM [Suspect]
     Indication: OESOPHAGEAL SPASM
     Route: 048
     Dates: start: 20060101, end: 20100301

REACTIONS (4)
  - PAIN [None]
  - INSOMNIA [None]
  - DRUG DOSE OMISSION [None]
  - OESOPHAGEAL SPASM [None]
